FAERS Safety Report 6644627-5 (Version None)
Quarter: 2010Q1

REPORT INFORMATION
  Report Type: 
  Country: None (occurrence: None)
  Receive Date: 20100322
  Receipt Date: 20100318
  Transmission Date: 20100710
  Serious: Yes (Hospitalization)
  Sender: FDA-Public Use
  Company Number: DE-TEVA-227432ISR

PATIENT
  Age: 74 Year
  Sex: Female

DRUGS (3)
  1. FLUOROURACIL [Suspect]
     Indication: COLON CANCER
     Route: 042
     Dates: start: 20100309, end: 20100301
  2. CALCIUM FOLINATE [Concomitant]
     Indication: COLON CANCER
     Dates: start: 20100309
  3. OXALIPLATIN [Concomitant]
     Indication: COLON CANCER
     Dates: start: 20100309

REACTIONS (3)
  - CONFUSIONAL STATE [None]
  - CONVULSION [None]
  - ENCEPHALOPATHY [None]
